FAERS Safety Report 6272178-9 (Version None)
Quarter: 2009Q3

REPORT INFORMATION
  Report Type: 
  Country: None (occurrence: None)
  Receive Date: 20090717
  Receipt Date: 20090713
  Transmission Date: 20100115
  Serious: Yes (Death, Other)
  Sender: FDA-Public Use
  Company Number: CA-CELGENEUS-028-21880-09061143

PATIENT
  Sex: Female

DRUGS (4)
  1. REVLIMID [Suspect]
     Indication: MULTIPLE MYELOMA
     Route: 048
     Dates: start: 20090408, end: 20090506
  2. REVLIMID [Suspect]
     Route: 048
     Dates: start: 20090220, end: 20090310
  3. REVLIMID [Suspect]
     Route: 048
     Dates: start: 20090123, end: 20090220
  4. DEXAMETHASONE [Concomitant]
     Indication: MULTIPLE MYELOMA

REACTIONS (5)
  - BACTERIAL SEPSIS [None]
  - IMMUNOSUPPRESSION [None]
  - MULTIPLE MYELOMA [None]
  - OEDEMA PERIPHERAL [None]
  - PANCYTOPENIA [None]
